FAERS Safety Report 15364251 (Version 1)
Quarter: 2018Q3

REPORT INFORMATION
  Report Type: Other
  Country: None (occurrence: TH)
  Receive Date: 20180909
  Receipt Date: 20180909
  Transmission Date: 20181010
  Serious: Yes (Other)
  Sender: FDA-Public Use
  Company Number: TH-POPULATION COUNCIL, INC.-2054772

PATIENT
  Age: 15 Year
  Sex: Female

DRUGS (1)
  1. JADELLE [Suspect]
     Active Substance: LEVONORGESTREL
     Indication: CONTRACEPTION
     Route: 059
     Dates: start: 20171004

REACTIONS (6)
  - Implant site pain [None]
  - Pregnancy with implant contraceptive [Unknown]
  - Implant site inflammation [None]
  - Implant site swelling [None]
  - Implant site erythema [None]
  - Drug ineffective [None]

NARRATIVE: CASE EVENT DATE: 20180314
